FAERS Safety Report 13429441 (Version 7)
Quarter: 2018Q1

REPORT INFORMATION
  Report Type: Spontaneous
  Country: AU (occurrence: AU)
  Receive Date: 20170411
  Receipt Date: 20180222
  Transmission Date: 20180508
  Serious: Yes (Other)
  Sender: FDA-Public Use
  Company Number: AU-009507513-1704AUS003875

PATIENT
  Sex: Male

DRUGS (9)
  1. RITONAVIR. [Concomitant]
     Active Substance: RITONAVIR
     Indication: HIV INFECTION
     Dosage: UNK
     Dates: start: 2000, end: 2011
  2. ISENTRESS [Suspect]
     Active Substance: RALTEGRAVIR POTASSIUM
     Indication: HIV INFECTION
     Dosage: 400 (UNITS NOT PROVIDED), BID
     Route: 048
     Dates: start: 201201, end: 2016
  3. ISENTRESS [Suspect]
     Active Substance: RALTEGRAVIR POTASSIUM
     Dosage: 800 MG AM; 400 MG PM
     Route: 048
     Dates: start: 2016, end: 2016
  4. DARUNAVIR [Concomitant]
     Active Substance: DARUNAVIR
     Dosage: 800/R, BID
     Dates: start: 2016
  5. ETRAVIRINE [Concomitant]
     Active Substance: ETRAVIRINE
     Indication: HIV INFECTION
     Dosage: 200 (UNITS NOT PROVIDED) BID
     Dates: start: 201201
  6. ISENTRESS [Suspect]
     Active Substance: RALTEGRAVIR POTASSIUM
     Dosage: 800 MG TWICE DAILY
     Route: 048
     Dates: start: 2016
  7. DARUNAVIR [Concomitant]
     Active Substance: DARUNAVIR
     Indication: HIV INFECTION
     Dosage: 600 R, BID
     Dates: start: 201201, end: 2016
  8. DARUNAVIR [Concomitant]
     Active Substance: DARUNAVIR
     Dosage: 600/R AM; 800/R PM, BID
     Dates: start: 2016, end: 2016
  9. RITONAVIR. [Concomitant]
     Active Substance: RITONAVIR
     Dosage: UNK
     Dates: start: 201201

REACTIONS (5)
  - Off label use [Unknown]
  - Myalgia [Unknown]
  - Blood HIV RNA increased [Recovering/Resolving]
  - HIV-associated neurocognitive disorder [Unknown]
  - Drug level increased [Unknown]

NARRATIVE: CASE EVENT DATE: 2016
